FAERS Safety Report 14329415 (Version 1)
Quarter: 2017Q4

REPORT INFORMATION
  Report Type: Spontaneous
  Country: JP (occurrence: JP)
  Receive Date: 20171227
  Receipt Date: 20171227
  Transmission Date: 20180321
  Serious: Yes (Other)
  Sender: FDA-Public Use
  Company Number: JP-PFIZER INC-2017456514

PATIENT
  Age: 54 Year
  Sex: Male
  Weight: 66 kg

DRUGS (6)
  1. HEPARINOID [Suspect]
     Active Substance: CHONDROITIN SULFATE (BOVINE)
     Indication: DERMATITIS ATOPIC
     Dosage: UNK
     Route: 062
     Dates: start: 20170929, end: 20171014
  2. ELIQUIS [Suspect]
     Active Substance: APIXABAN
     Dosage: 2.5 MG, BID
     Route: 048
     Dates: start: 20171014
  3. MAINTATE [Concomitant]
     Active Substance: BISOPROLOL FUMARATE
     Indication: ATRIAL FIBRILLATION
     Dosage: 0.625 MG, 1X/DAY
     Route: 048
     Dates: start: 20151003, end: 20171027
  4. ELIQUIS [Suspect]
     Active Substance: APIXABAN
     Indication: CEREBROVASCULAR ACCIDENT PROPHYLAXIS
     Dosage: 2.5 MG, 2X/DAY
     Route: 048
     Dates: start: 20140214, end: 20140227
  5. ELIQUIS [Suspect]
     Active Substance: APIXABAN
     Dosage: 5 MG, 2X/DAY
     Route: 048
     Dates: start: 20140228, end: 20171014
  6. VIBRAMYCIN [Suspect]
     Active Substance: DOXYCYCLINE
     Indication: DERMATITIS ATOPIC
     Dosage: 100 MG, BID
     Route: 048
     Dates: start: 20170929, end: 20171013

REACTIONS (3)
  - Haemorrhage subcutaneous [Recovered/Resolved]
  - Pain [Not Recovered/Not Resolved]
  - Off label use [Unknown]

NARRATIVE: CASE EVENT DATE: 201710
